FAERS Safety Report 5844009-X (Version None)
Quarter: 2008Q3

REPORT INFORMATION
  Report Type: 
  Country: None (occurrence: None)
  Receive Date: 20080731
  Receipt Date: 20080331
  Transmission Date: 20090109
  Serious: No
  Sender: FDA-Public Use
  Company Number: US200804000301

PATIENT
  Age: 36 Year
  Sex: Female

DRUGS (3)
  1. BYETTA [Suspect]
     Indication: TYPE 2 DIABETES MELLITUS
     Dosage: SUBCUTANEOUS
     Route: 058
     Dates: start: 20070601
  2. EXENATIDE PEN, DISPOSABLE DEVICE (EXENATIDE PEN) PEN,DISPOSABLE [Concomitant]
  3. METFORMIN HCL [Concomitant]

REACTIONS (2)
  - EARLY SATIETY [None]
  - WEIGHT DECREASED [None]
